FAERS Safety Report 7391701-4 (Version None)
Quarter: 2011Q2

REPORT INFORMATION
  Report Type: 
  Country: None (occurrence: None)
  Receive Date: 20110404
  Receipt Date: 20110324
  Transmission Date: 20111010
  Serious: Yes (Hospitalization, Other)
  Sender: FDA-Public Use
  Company Number: US-BAXTER-2011BH006708

PATIENT
  Age: 67 Year
  Sex: Female

DRUGS (1)
  1. DIANEAL [Suspect]
     Indication: PERITONEAL DIALYSIS
     Route: 033
     Dates: end: 20110307

REACTIONS (4)
  - VOMITING [None]
  - CALCIPHYLAXIS [None]
  - FUNGAL PERITONITIS [None]
  - NAUSEA [None]
